FAERS Safety Report 4440645-6 (Version None)
Quarter: 2004Q3

REPORT INFORMATION
  Report Type: 
  Country: None (occurrence: None)
  Receive Date: 20040903
  Receipt Date: 20040720
  Transmission Date: 20050211
  Serious: Yes (Hospitalization, Other)
  Sender: FDA-Public Use
  Company Number: FR-AMGEN-US084822

PATIENT
  Age: 57 Year
  Sex: Male

DRUGS (2)
  1. ENBREL [Suspect]
     Indication: POLYARTHRITIS
     Route: 058
     Dates: start: 20000401, end: 20040401
  2. BISOPROLOL FUMARATE [Suspect]
     Route: 048
     Dates: start: 20000601, end: 20040401

REACTIONS (2)
  - RENAL COLIC [None]
  - RETROPERITONEAL FIBROSIS [None]
